FAERS Safety Report 13074652 (Version 1)
Quarter: 2016Q4

REPORT INFORMATION
  Report Type: Spontaneous
  Country: IT (occurrence: IT)
  Receive Date: 20161230
  Receipt Date: 20161230
  Transmission Date: 20170207
  Serious: Yes (Other)
  Sender: FDA-Public Use
  Company Number: IT-ACCORD-047058

PATIENT
  Sex: Female

DRUGS (2)
  1. AVASTIN [Suspect]
     Active Substance: BEVACIZUMAB
     Indication: COLON NEOPLASM
     Dosage: 400 MG
     Dates: start: 20150617, end: 20160503
  2. FLUOROURACIL. [Suspect]
     Active Substance: FLUOROURACIL
     Indication: COLON NEOPLASM
     Dosage: ALSO RECEIVED 400 MG/M^2 CYCLICAL VIA IV BOLUS DURING SAME DURATION
     Route: 042
     Dates: start: 20150617, end: 20160504

REACTIONS (1)
  - Ejection fraction decreased [Not Recovered/Not Resolved]
